FAERS Safety Report 20997978 (Version 1)
Quarter: 2022Q2

REPORT INFORMATION
  Report Type: Spontaneous
  Country: US (occurrence: None)
  Receive Date: 20220622
  Receipt Date: 20220622
  Transmission Date: 20220720
  Serious: Yes (unspecified)
  Sender: FDA-Public Use
  Company Number: None

PATIENT
  Age: 51 Year
  Sex: Male
  Weight: 97.2 kg

DRUGS (1)
  1. GAMMAGARD [Suspect]
     Active Substance: HUMAN IMMUNOGLOBULIN G
     Indication: Immunodeficiency
     Dosage: FREQUENCY : MONTHLY;?
     Route: 042
     Dates: start: 20170606, end: 20220606

REACTIONS (5)
  - Infusion related reaction [None]
  - Rash [None]
  - Peripheral swelling [None]
  - Nausea [None]
  - Erythema [None]

NARRATIVE: CASE EVENT DATE: 20220606
